FAERS Safety Report 11051467 (Version 2)
Quarter: 2015Q2

REPORT INFORMATION
  Report Type: Spontaneous
  Country: ES (occurrence: ES)
  Receive Date: 20150421
  Receipt Date: 20150529
  Transmission Date: 20150821
  Serious: Yes (Other)
  Sender: FDA-Public Use
  Company Number: ES-BRACCO-001144

PATIENT
  Age: 63 Year
  Sex: Female

DRUGS (6)
  1. CYMBALTA [Concomitant]
     Active Substance: DULOXETINE HYDROCHLORIDE
     Route: 048
  2. LYRICA [Concomitant]
     Active Substance: PREGABALIN
     Route: 048
  3. IOPAMIRO [Suspect]
     Active Substance: IOPAMIDOL
     Indication: ANEURYSM REPAIR
     Dosage: 90-100 ML
     Route: 013
     Dates: start: 20150203, end: 20150203
  4. SPIRIVA [Concomitant]
     Active Substance: TIOTROPIUM BROMIDE MONOHYDRATE
     Indication: EMPHYSEMA
     Route: 055
  5. ANASMA [Concomitant]
     Indication: EMPHYSEMA
     Route: 055
  6. FLUMIL [Concomitant]
     Active Substance: ACETYLCYSTEINE
     Indication: EMPHYSEMA
     Route: 048

REACTIONS (2)
  - Aphasia [Recovered/Resolved]
  - Hemiplegia [Recovered/Resolved]

NARRATIVE: CASE EVENT DATE: 20150203
